FAERS Safety Report 5828088-1 (Version None)
Quarter: 2008Q3

REPORT INFORMATION
  Report Type: 
  Country: None (occurrence: None)
  Receive Date: 20080730
  Receipt Date: 20071221
  Transmission Date: 20090109
  Serious: No
  Sender: FDA-Public Use
  Company Number: A0700307A

PATIENT
  Age: 18 Month
  Sex: Male

DRUGS (2)
  1. ZANTAC [Suspect]
     Route: 048
  2. CLARITIN [Concomitant]

REACTIONS (2)
  - DYSPHAGIA [None]
  - FOREIGN BODY ASPIRATION [None]
